FAERS Safety Report 18297738 (Version 1)
Quarter: 2020Q3

REPORT INFORMATION
  Report Type: Spontaneous
  Country: FR (occurrence: FR)
  Receive Date: 20200923
  Receipt Date: 20200923
  Transmission Date: 20201103
  Serious: Yes (Death, Hospitalization, Other)
  Sender: FDA-Public Use
  Company Number: FR-MACLEODS PHARMACEUTICALS US LTD-MAC2020028129

PATIENT

DRUGS (2)
  1. OLANZAPINE 7.5 MG [Suspect]
     Active Substance: OLANZAPINE
     Indication: PRODUCT USED FOR UNKNOWN INDICATION
     Dosage: 7.5 MILLIGRAM
     Route: 065
     Dates: start: 2016
  2. CLOMIPRAMINE [Suspect]
     Active Substance: CLOMIPRAMINE
     Indication: DEPRESSION
     Dosage: 150 MILLIGRAM
     Route: 065
     Dates: start: 201608, end: 2016

REACTIONS (11)
  - Cognitive disorder [Recovering/Resolving]
  - Sleep disorder [Unknown]
  - Pneumonia [Fatal]
  - Extrapyramidal disorder [Recovering/Resolving]
  - Orthostatic hypotension [Unknown]
  - Confusional state [Recovering/Resolving]
  - Dysuria [Unknown]
  - Dyspraxia [Recovering/Resolving]
  - Drug hypersensitivity [Recovering/Resolving]
  - Hallucination, visual [Recovered/Resolved]
  - Dysphagia [Recovering/Resolving]

NARRATIVE: CASE EVENT DATE: 2016
